FAERS Safety Report 8991831 (Version 2)
Quarter: 2013Q2

REPORT INFORMATION
  Report Type: Spontaneous
  Country: JP (occurrence: JP)
  Receive Date: 20121231
  Receipt Date: 20130409
  Transmission Date: 20140414
  Serious: Yes (Death, Other)
  Sender: FDA-Public Use
  Company Number: PHHY2012JP030638

PATIENT
  Age: 44 Year
  Sex: Male

DRUGS (3)
  1. NEORAL [Suspect]
     Indication: STEM CELL TRANSPLANT
  2. NEORAL [Suspect]
     Indication: PROPHYLAXIS AGAINST GRAFT VERSUS HOST DISEASE
  3. METHOTREXATE [Suspect]
     Indication: PROPHYLAXIS AGAINST GRAFT VERSUS HOST DISEASE

REACTIONS (2)
  - Acute lymphocytic leukaemia recurrent [Fatal]
  - Graft versus host disease in liver [Fatal]
